FAERS Safety Report 12885950 (Version 2)
Quarter: 2016Q4

REPORT INFORMATION
  Report Type: Report from Study
  Country: US (occurrence: US)
  Receive Date: 20161026
  Receipt Date: 20161128
  Transmission Date: 20170207
  Serious: Yes (Hospitalization)
  Sender: FDA-Public Use
  Company Number: PHHO2016US015392

PATIENT
  Age: 15 Year
  Sex: Male
  Weight: 57.6 kg

DRUGS (9)
  1. FLUDARABINE [Suspect]
     Active Substance: FLUDARABINE PHOSPHATE
     Indication: CHEMOTHERAPY
     Dosage: 30 MG/M2, QD
     Route: 042
     Dates: start: 20161007
  2. CYCLOPHOSPHAMIDE. [Suspect]
     Active Substance: CYCLOPHOSPHAMIDE
     Indication: CHEMOTHERAPY
     Dosage: 500 MG/M2, QD
     Route: 042
     Dates: start: 20161007
  3. CTL019 [Suspect]
     Active Substance: TISAGENLECLEUCEL-T
     Indication: ACUTE LYMPHOCYTIC LEUKAEMIA
     Dosage: 2.433X10^8
     Route: 042
     Dates: start: 20161013, end: 20161013
  4. ALLOPURINOL. [Concomitant]
     Active Substance: ALLOPURINOL
     Indication: PROPHYLAXIS
     Dosage: 300 MG, BID
     Route: 048
     Dates: start: 20161007
  5. CEFEPIME [Concomitant]
     Active Substance: CEFEPIME HYDROCHLORIDE
     Indication: INFECTION PROPHYLAXIS
     Dosage: 2 G, Q8H
     Route: 042
     Dates: start: 20161014
  6. POSACONAZOLE [Concomitant]
     Active Substance: POSACONAZOLE
     Indication: INFECTION PROPHYLAXIS
     Dosage: 300 MG, QD
     Route: 048
     Dates: start: 20161012
  7. VANCOMYCIN [Concomitant]
     Active Substance: VANCOMYCIN
     Indication: INFECTION PROPHYLAXIS
     Dosage: 850 MG, Q8H
     Route: 042
     Dates: start: 20161015
  8. ACYCLOVIR. [Concomitant]
     Active Substance: ACYCLOVIR
     Indication: INFECTION PROPHYLAXIS
     Dosage: 400 MG, UNK
     Route: 048
     Dates: start: 20161013
  9. ACTIGALL [Concomitant]
     Active Substance: URSODIOL
     Indication: PROPHYLAXIS
     Dosage: 300 MG, BID
     Route: 048
     Dates: start: 20161009

REACTIONS (2)
  - Cytokine release syndrome [Recovered/Resolved]
  - Pancytopenia [Not Recovered/Not Resolved]

NARRATIVE: CASE EVENT DATE: 20161008
